FAERS Safety Report 20607228 (Version 4)
Quarter: 2022Q4

REPORT INFORMATION
  Report Type: Spontaneous
  Country: US (occurrence: US)
  Receive Date: 20220317
  Receipt Date: 20221206
  Transmission Date: 20230113
  Serious: Yes (Hospitalization)
  Sender: FDA-Public Use
  Company Number: US-MEDEXUS PHARMA, INC.-2022MED00107

PATIENT
  Age: 64 Year
  Sex: Female
  Weight: 57.143 kg

DRUGS (13)
  1. RASUVO [Suspect]
     Active Substance: METHOTREXATE SODIUM
     Indication: Pain
     Dosage: 15 MG, 1X/WEEK ON FRIDAY TO HER THIGH
     Dates: end: 20220506
  2. RASUVO [Suspect]
     Active Substance: METHOTREXATE SODIUM
     Indication: Osteoarthritis
  3. RASUVO [Suspect]
     Active Substance: METHOTREXATE SODIUM
     Indication: Rheumatoid arthritis
  4. RASUVO [Suspect]
     Active Substance: METHOTREXATE SODIUM
     Indication: Pain
  5. RASUVO [Suspect]
     Active Substance: METHOTREXATE SODIUM
     Indication: Osteoarthritis
  6. RASUVO [Suspect]
     Active Substance: METHOTREXATE SODIUM
     Indication: Rheumatoid arthritis
  7. CALCIUM [Concomitant]
     Active Substance: CALCIUM
  8. HAIR VITAMIN [Concomitant]
  9. LISINOPRIL [Concomitant]
     Active Substance: LISINOPRIL
     Dosage: 12.5 MG, 1X/DAY
  10. DICLOFENAC [Concomitant]
     Active Substance: DICLOFENAC
  11. CITALOPRAM [Concomitant]
     Active Substance: CITALOPRAM HYDROBROMIDE
     Dosage: UNK, AS NEEDED
  12. FOLIC ACID [Concomitant]
     Active Substance: FOLIC ACID
  13. ^DICYCLINE^ [Concomitant]

REACTIONS (10)
  - COVID-19 [Recovered/Resolved]
  - Spinal stenosis [Unknown]
  - Spinal operation [Not Recovered/Not Resolved]
  - Osteoarthritis [Unknown]
  - Memory impairment [Not Recovered/Not Resolved]
  - Pain in extremity [Not Recovered/Not Resolved]
  - Off label use [Recovered/Resolved]
  - Product dose omission issue [Recovered/Resolved]
  - Arthralgia [Not Recovered/Not Resolved]
  - Malaise [Not Recovered/Not Resolved]

NARRATIVE: CASE EVENT DATE: 20220517
